FAERS Safety Report 6756381-7 (Version None)
Quarter: 2010Q2

REPORT INFORMATION
  Report Type: 
  Country: None (occurrence: None)
  Receive Date: 20100604
  Receipt Date: 20100521
  Transmission Date: 20101027
  Serious: Yes (Hospitalization)
  Sender: FDA-Public Use
  Company Number: US-ROCHE-707243

PATIENT
  Age: 78 Year
  Sex: Male

DRUGS (2)
  1. CELLCEPT [Suspect]
     Indication: DRUG USE FOR UNKNOWN INDICATION
     Route: 065
  2. PROGRAF [Suspect]
     Route: 048

REACTIONS (6)
  - ANAEMIA [None]
  - ENCEPHALOPATHY [None]
  - FAILURE TO THRIVE [None]
  - PANCYTOPENIA [None]
  - RENAL FAILURE [None]
  - RESPIRATORY FAILURE [None]
